FAERS Safety Report 13725420 (Version 3)
Quarter: 2017Q4

REPORT INFORMATION
  Report Type: Spontaneous
  Country: US (occurrence: US)
  Receive Date: 20170706
  Receipt Date: 20171214
  Transmission Date: 20180320
  Serious: Yes (Hospitalization, Other)
  Sender: FDA-Public Use
  Company Number: US-PFIZER INC-2017288530

PATIENT
  Age: 79 Year
  Sex: Female
  Weight: 88.9 kg

DRUGS (1)
  1. IBRANCE [Suspect]
     Active Substance: PALBOCICLIB
     Indication: BREAST CANCER FEMALE
     Dosage: 125 MG, CYCLIC (WITH FOOD FOR 21 DAYS ON 7 DAYS OFF)
     Route: 048

REACTIONS (3)
  - Second primary malignancy [Recovering/Resolving]
  - Brain neoplasm malignant [Recovering/Resolving]
  - Neoplasm progression [Unknown]

NARRATIVE: CASE EVENT DATE: 201710
